FAERS Safety Report 18123035 (Version 1)
Quarter: 2020Q3

REPORT INFORMATION
  Report Type: Spontaneous
  Country: JP (occurrence: JP)
  Receive Date: 20200807
  Receipt Date: 20200807
  Transmission Date: 20201103
  Serious: Yes (Death, Life-Threatening, Hospitalization, Other)
  Sender: FDA-Public Use
  Company Number: JP-STRIDES ARCOLAB LIMITED-2020SP008782

PATIENT
  Age: 66 Year
  Sex: Female

DRUGS (3)
  1. MYCOPHENOLATE MOFETIL. [Suspect]
     Active Substance: MYCOPHENOLATE MOFETIL
     Indication: SYSTEMIC LUPUS ERYTHEMATOSUS
     Dosage: UNK
     Route: 065
  2. TACROLIMUS. [Suspect]
     Active Substance: TACROLIMUS
     Indication: SYSTEMIC LUPUS ERYTHEMATOSUS
     Dosage: UNK
     Route: 065
  3. PREDNISOLONE. [Suspect]
     Active Substance: PREDNISOLONE
     Indication: SYSTEMIC LUPUS ERYTHEMATOSUS
     Dosage: UNK
     Route: 065

REACTIONS (17)
  - Pulmonary mass [Unknown]
  - Thrombocytopenia [Unknown]
  - Abdominal pain [Unknown]
  - Strongyloidiasis [Fatal]
  - Oedema peripheral [Unknown]
  - Nausea [Unknown]
  - Abdominal tenderness [Unknown]
  - Immune reconstitution inflammatory syndrome [Unknown]
  - Cytomegalovirus enteritis [Not Recovered/Not Resolved]
  - Respiratory disorder [Unknown]
  - Gastric mucosa erythema [Unknown]
  - Gastritis erosive [Unknown]
  - Off label use [Unknown]
  - Altered state of consciousness [Unknown]
  - Gastrointestinal oedema [Unknown]
  - Pneumonia bacterial [Unknown]
  - Pneumocystis jirovecii pneumonia [Unknown]
